FAERS Safety Report 14718056 (Version 1)
Quarter: 2018Q2

REPORT INFORMATION
  Report Type: Spontaneous
  Country: US (occurrence: US)
  Receive Date: 20180404
  Receipt Date: 20180404
  Transmission Date: 20180711
  Serious: No
  Sender: FDA-Public Use
  Company Number: US-SA-2018SA065328

PATIENT
  Sex: Female

DRUGS (1)
  1. DUPIXENT [Suspect]
     Active Substance: DUPILUMAB
     Dosage: FREQUENCY: ONE A WEEK AND FULL SYRINGE EVERY OTHER WEEK
     Route: 058

REACTIONS (2)
  - Fatigue [Unknown]
  - Influenza like illness [Unknown]
